FAERS Safety Report 5340443-5 (Version None)
Quarter: 2007Q2

REPORT INFORMATION
  Report Type: 
  Country: None (occurrence: None)
  Receive Date: 20070531
  Receipt Date: 20070524
  Transmission Date: 20071010
  Serious: Yes (Other)
  Sender: FDA-Public Use
  Company Number: US-JNJFOC-20070506606

PATIENT
  Sex: Male
  Weight: 108.86 kg

DRUGS (15)
  1. FENTANYL TRANSDERMAL SYSTEM [Suspect]
     Route: 062
  2. FENTANYL TRANSDERMAL SYSTEM [Suspect]
     Route: 062
  3. FENTANYL TRANSDERMAL SYSTEM [Suspect]
     Indication: INTERVERTEBRAL DISC PROTRUSION
     Route: 062
  4. FENTANYL TRANSDERMAL SYSTEM [Suspect]
     Indication: PAIN
     Route: 062
  5. ZETIA [Concomitant]
     Indication: BLOOD CHOLESTEROL
     Route: 048
  6. LIPITOR [Concomitant]
     Indication: BLOOD CHOLESTEROL
     Route: 048
  7. GLYBURIDE [Concomitant]
     Indication: DIABETES MELLITUS
     Route: 048
  8. INSULIN [Concomitant]
     Indication: DIABETES MELLITUS
     Route: 058
  9. LASIX [Concomitant]
     Indication: FLUID RETENTION
     Route: 048
  10. ASPIRIN [Concomitant]
     Indication: THROMBOSIS
     Route: 048
  11. ELAVIL [Concomitant]
     Indication: SLEEP DISORDER
     Route: 048
  12. ZANAFLEX [Concomitant]
     Indication: MUSCLE RELAXANT THERAPY
     Route: 048
  13. METOPROLOL SUCCINATE [Concomitant]
     Indication: BLOOD PRESSURE
     Route: 048
  14. LORCET-HD [Concomitant]
     Indication: PAIN
     Route: 048
  15. COMBIVENT [Concomitant]
     Indication: LUNG DISORDER

REACTIONS (3)
  - DRUG INEFFECTIVE [None]
  - NEUROPATHY [None]
  - WRONG TECHNIQUE IN DRUG USAGE PROCESS [None]
